FAERS Safety Report 14405870 (Version 1)
Quarter: 2018Q1

REPORT INFORMATION
  Report Type: Spontaneous
  Country: US (occurrence: US)
  Receive Date: 20180118
  Receipt Date: 20180118
  Transmission Date: 20180509
  Serious: No
  Sender: FDA-Public Use
  Company Number: US-APOTEX-2017AP022816

PATIENT
  Sex: Male

DRUGS (1)
  1. MOXIFIOXACIN OPHTHALMIC SOLUTION USP [Suspect]
     Active Substance: MOXIFLOXACIN
     Indication: PRODUCT USED FOR UNKNOWN INDICATION
     Dosage: 1 EYE FOUR TIMES A DAILY
     Route: 065
     Dates: start: 20171201, end: 20171208

REACTIONS (2)
  - Accidental overdose [Unknown]
  - Product quality issue [Unknown]
